FAERS Safety Report 13642060 (Version 5)
Quarter: 2017Q3

REPORT INFORMATION
  Report Type: Spontaneous
  Country: GR (occurrence: GR)
  Receive Date: 20170612
  Receipt Date: 20170928
  Transmission Date: 20171127
  Serious: Yes (Hospitalization)
  Sender: FDA-Public Use
  Company Number: ALCN2017GR003825

PATIENT
  Sex: Female

DRUGS (3)
  1. TETRACAINE. [Concomitant]
     Active Substance: TETRACAINE
     Indication: POSTOPERATIVE CARE
     Route: 047
  2. BSS [Suspect]
     Active Substance: CALCIUM CHLORIDE\MAGNESIUM CHLORIDE\POTASSIUM CHLORIDE\SODIUM ACETATE\SODIUM CHLORIDE\SODIUM CITRATE
     Indication: EYE IRRIGATION
     Dosage: UNK
     Route: 031
     Dates: start: 20100624, end: 20100624
  3. BETADINE [Concomitant]
     Active Substance: POVIDONE-IODINE
     Indication: POSTOPERATIVE CARE
     Route: 047

REACTIONS (9)
  - Hypopyon [Unknown]
  - Neuralgia [Unknown]
  - Lacrimation increased [Unknown]
  - Blindness [Unknown]
  - Eye pain [Unknown]
  - Endophthalmitis [Unknown]
  - Eye irritation [Unknown]
  - Ocular hyperaemia [Unknown]
  - Eye oedema [Unknown]

NARRATIVE: CASE EVENT DATE: 20100624
